FAERS Safety Report 7924311-8 (Version None)
Quarter: 2011Q4

REPORT INFORMATION
  Report Type: 
  Country: None (occurrence: None)
  Receive Date: 20111117
  Receipt Date: 20110321
  Transmission Date: 20120403
  Serious: No
  Sender: FDA-Public Use
  Company Number: US-AMGEN-USASP2011015327

PATIENT
  Age: 78 Year
  Sex: Female
  Weight: 62.585 kg

DRUGS (13)
  1. CLONAZEPAM [Concomitant]
     Dosage: 1 MG, UNK
  2. VITAMIN C                          /00008001/ [Concomitant]
     Dosage: 500 MG, UNK
  3. OXYCODONE HCL [Concomitant]
     Dosage: 5 MG, UNK
  4. B COMPLEX                          /00212701/ [Concomitant]
  5. CENTRUM                            /00554501/ [Concomitant]
  6. LEUCOVORIN CALCIUM [Concomitant]
     Dosage: 5 MG, UNK
  7. PRILOSEC [Concomitant]
     Dosage: 10 MG, UNK
  8. ENBREL [Suspect]
     Indication: PRODUCT USED FOR UNKNOWN INDICATION
     Dosage: 50 MG, QWK
     Route: 058
  9. CALCIUM +VIT D [Concomitant]
  10. ENBREL [Suspect]
  11. LYRICA [Concomitant]
     Dosage: 50 MG, UNK
  12. VITAMIN D [Concomitant]
     Dosage: 1000 UNK, UNK
  13. PROBIOTIC FEMINA [Concomitant]

REACTIONS (2)
  - SINUS CONGESTION [None]
  - INJECTION SITE ERYTHEMA [None]
